FAERS Safety Report 21504904 (Version 1)
Quarter: 2022Q4

REPORT INFORMATION
  Report Type: Spontaneous
  Country: US (occurrence: US)
  Receive Date: 20221025
  Receipt Date: 20221025
  Transmission Date: 20230112
  Serious: No
  Sender: FDA-Public Use
  Company Number: US-BIOMARINAP-US-2022-146339

PATIENT

DRUGS (1)
  1. KUVAN [Suspect]
     Active Substance: SAPROPTERIN DIHYDROCHLORIDE
     Indication: Phenylketonuria
     Dosage: 300 MILLIGRAM, QD
     Route: 048
     Dates: start: 20221004

REACTIONS (1)
  - Respiratory syncytial virus infection [Unknown]
